FAERS Safety Report 19490198 (Version 1)
Quarter: 2021Q3

REPORT INFORMATION
  Report Type: Spontaneous
  Country: US (occurrence: US)
  Receive Date: 20210705
  Receipt Date: 20210705
  Transmission Date: 20211014
  Serious: No
  Sender: FDA-Public Use
  Company Number: US-TEVA-2021-US-1929982

PATIENT
  Age: 51 Year
  Sex: Female
  Weight: 76.2 kg

DRUGS (1)
  1. TRAMADOL. [Suspect]
     Active Substance: TRAMADOL
     Indication: MYALGIA
     Route: 065
     Dates: start: 2012

REACTIONS (2)
  - Insomnia [Unknown]
  - Headache [Unknown]
